FAERS Safety Report 7908915-4 (Version None)
Quarter: 2011Q4

REPORT INFORMATION
  Report Type: 
  Country: None (occurrence: None)
  Receive Date: 20111111
  Receipt Date: 20111103
  Transmission Date: 20120403
  Serious: Yes (Hospitalization, Other)
  Sender: FDA-Public Use
  Company Number: US-BRISTOL-MYERS SQUIBB COMPANY-16017303

PATIENT
  Age: 50 Year
  Sex: Female

DRUGS (2)
  1. SPRYCEL [Suspect]
     Indication: CHRONIC MYELOID LEUKAEMIA
     Dosage: STOPPED FOR A WEEK AND RESTARTED 50MG FOR 6 WEEKS, 100MG IN AUG11 AND REDUCED TO 70 MG.
     Route: 048
     Dates: start: 20110613
  2. GAVISCON [Concomitant]
     Indication: GASTROOESOPHAGEAL REFLUX DISEASE

REACTIONS (6)
  - PYREXIA [None]
  - ARTHRALGIA [None]
  - HYPERHIDROSIS [None]
  - PULMONARY OEDEMA [None]
  - TREMOR [None]
  - CHILLS [None]
